FAERS Safety Report 4448721-9 (Version None)
Quarter: 2004Q3

REPORT INFORMATION
  Report Type: 
  Country: None (occurrence: None)
  Receive Date: 20040909
  Receipt Date: 20040831
  Transmission Date: 20050211
  Serious: Yes (Other)
  Sender: FDA-Public Use
  Company Number: KII-2001-0003177

PATIENT
  Age: 28 Year
  Sex: 0

DRUGS (1)
  1. OXYCONTIN [Suspect]

REACTIONS (2)
  - BRAIN DEATH [None]
  - OVERDOSE [None]
